FAERS Safety Report 11413575 (Version 3)
Quarter: 2016Q2

REPORT INFORMATION
  Report Type: Spontaneous
  Country: BR (occurrence: BR)
  Receive Date: 20150824
  Receipt Date: 20160415
  Transmission Date: 20160815
  Serious: Yes (Other)
  Sender: FDA-Public Use
  Company Number: BR-BAYER-2015-400924

PATIENT
  Age: 26 Year
  Sex: Female

DRUGS (1)
  1. MIRENA [Suspect]
     Active Substance: LEVONORGESTREL
     Indication: CONTRACEPTION
     Dosage: 20 MCG/24HR, CONT
     Route: 015
     Dates: start: 2012

REACTIONS (7)
  - Pregnancy with contraceptive device [Recovered/Resolved]
  - Placenta praevia [None]
  - Embedded device [None]
  - Drug ineffective [None]
  - Amenorrhoea [Recovered/Resolved]
  - Uterine pain [None]
  - Device difficult to use [None]

NARRATIVE: CASE EVENT DATE: 201504
